FAERS Safety Report 6575180-2 (Version None)
Quarter: 2010Q1

REPORT INFORMATION
  Report Type: 
  Country: None (occurrence: None)
  Receive Date: 20100209
  Receipt Date: 20100128
  Transmission Date: 20100710
  Serious: Yes (Death)
  Sender: FDA-Public Use
  Company Number: JP-BAYER-200914693BYL

PATIENT
  Age: 79 Year
  Sex: Male
  Weight: 54 kg

DRUGS (8)
  1. NEXAVAR [Suspect]
     Indication: HEPATIC NEOPLASM MALIGNANT
     Dosage: TOTAL DAILY DOSE: 800 MG  UNIT DOSE: 200 MG
     Route: 048
     Dates: start: 20091117, end: 20091123
  2. PARIET [Concomitant]
     Dosage: BEFORE NEXAVAR ADMINISTRATION
     Route: 048
  3. AMLODIPINE [Concomitant]
     Dosage: BEFORE NEXAVAR ADMINISTRATION
     Route: 048
  4. URSO 250 [Concomitant]
     Dosage: BEFORE NEXAVAR ADMINISTRATION
     Route: 048
     Dates: end: 20091130
  5. LAC B [Concomitant]
     Dosage: BEFORE NEXAVAR ADMINISTRATION
     Route: 048
     Dates: end: 20091130
  6. BERIZYM [Concomitant]
     Dosage: BEFORE NEXAVAR ADMINISTRATION
     Route: 048
     Dates: end: 20091130
  7. ALDACTONE [Concomitant]
     Dosage: BEFORE NEXAVAR ADMINISTRATION
     Route: 048
     Dates: end: 20091130
  8. CEREKINON [Concomitant]
     Dosage: BEFORE NEXAVAR ADMINISTRATION
     Route: 048
     Dates: end: 20091130

REACTIONS (5)
  - ABDOMINAL PAIN UPPER [None]
  - HEPATIC FAILURE [None]
  - HEPATIC NEOPLASM MALIGNANT [None]
  - PYREXIA [None]
  - URINARY TRACT INFECTION [None]
